FAERS Safety Report 13397048 (Version 3)
Quarter: 2017Q3

REPORT INFORMATION
  Report Type: Spontaneous
  Country: FR (occurrence: FR)
  Receive Date: 20170403
  Receipt Date: 20170804
  Transmission Date: 20171127
  Serious: Yes (Other)
  Sender: FDA-Public Use
  Company Number: FR-PFIZER INC-2017136037

PATIENT
  Age: 86 Year
  Sex: Male

DRUGS (5)
  1. XALATAN [Suspect]
     Active Substance: LATANOPROST
     Indication: GLAUCOMA
     Dosage: 1 GTT, 1X/DAY IN BOTH EYES
     Dates: end: 201507
  2. NAAXIA /01329502/ [Concomitant]
     Dosage: UNK
  3. NAABAK /01266803/ [Concomitant]
     Dosage: UNK
  4. XALATAN [Suspect]
     Active Substance: LATANOPROST
     Dosage: 1 GTT, 1X/DAY IN BOTH EYES
     Dates: start: 20170315, end: 20170327
  5. XALATAN [Suspect]
     Active Substance: LATANOPROST
     Dosage: 1 GTT, 1X/DAY IN BOTH EYES
     Dates: start: 201605

REACTIONS (2)
  - Eye infection [Recovered/Resolved]
  - Eye irritation [Recovered/Resolved]

NARRATIVE: CASE EVENT DATE: 20170315
